FAERS Safety Report 13120032 (Version 2)
Quarter: 2017Q2

REPORT INFORMATION
  Report Type: Spontaneous
  Country: US (occurrence: US)
  Receive Date: 20170117
  Receipt Date: 20170412
  Transmission Date: 20170830
  Serious: Yes (Other)
  Sender: FDA-Public Use
  Company Number: US-TEVA-724594ACC

PATIENT
  Age: 44 Year
  Sex: Female
  Weight: 83.99 kg

DRUGS (1)
  1. PARAGARD T 380A [Suspect]
     Active Substance: COPPER
     Indication: CONTRACEPTION
     Dates: start: 201111

REACTIONS (4)
  - Actinomycosis [Unknown]
  - Device expulsion [Recovered/Resolved]
  - Menstruation irregular [Unknown]
  - Menorrhagia [Unknown]

NARRATIVE: CASE EVENT DATE: 20161213
